FAERS Safety Report 4485362-1 (Version None)
Quarter: 2004Q4

REPORT INFORMATION
  Report Type: 
  Country: None (occurrence: None)
  Receive Date: 20041025
  Receipt Date: 20041025
  Transmission Date: 20050328
  Serious: No
  Sender: FDA-Public Use
  Company Number: None

PATIENT
  Age: 27 Year
  Sex: Female
  Weight: 58.9676 kg

DRUGS (2)
  1. ZELNORM [Suspect]
     Indication: CONSTIPATION
     Dosage: 6MG TWICE PER DAY ORAL
     Route: 048
     Dates: start: 20041015, end: 20041021
  2. ZELNORM [Suspect]
     Indication: IRRITABLE BOWEL SYNDROME
     Dosage: 6MG TWICE PER DAY ORAL
     Route: 048
     Dates: start: 20041015, end: 20041021

REACTIONS (8)
  - DIARRHOEA [None]
  - DISTURBANCE IN ATTENTION [None]
  - DIZZINESS [None]
  - FEELING ABNORMAL [None]
  - FORMICATION [None]
  - HEADACHE [None]
  - HYPOTENSION [None]
  - RASH [None]
